FAERS Safety Report 4561158-7 (Version None)
Quarter: 2005Q1

REPORT INFORMATION
  Report Type: 
  Country: None (occurrence: None)
  Receive Date: 20050121
  Receipt Date: 20050106
  Transmission Date: 20050727
  Serious: Yes (Other)
  Sender: FDA-Public Use
  Company Number: BDI-006798

PATIENT
  Age: 55 Year
  Sex: Female

DRUGS (3)
  1. ISOVUE-300 [Suspect]
     Indication: DIAGNOSTIC PROCEDURE
     Dosage: 100 ML ONCE SY
     Dates: start: 20041214, end: 20041014
  2. INDERAL [Concomitant]
  3. METHIAZONE [Concomitant]

REACTIONS (5)
  - BLISTER [None]
  - BURNING SENSATION MUCOSAL [None]
  - SALIVARY GLAND ENLARGEMENT [None]
  - SKIN EXFOLIATION [None]
  - URTICARIA [None]
